FAERS Safety Report 12467185 (Version 2)
Quarter: 2016Q2

REPORT INFORMATION
  Report Type: Spontaneous
  Country: US (occurrence: US)
  Receive Date: 20160615
  Receipt Date: 20160629
  Transmission Date: 20160815
  Serious: Yes (Hospitalization)
  Sender: FDA-Public Use
  Company Number: US-LUPIN PHARMACEUTICALS INC.-E2B_00005582

PATIENT
  Sex: Female
  Weight: 104 kg

DRUGS (1)
  1. LISINOPRIL TABLETS USP 30MG [Suspect]
     Active Substance: LISINOPRIL
     Indication: HYPERTENSION
     Dosage: 30 MG

REACTIONS (7)
  - Chest discomfort [Recovered/Resolved]
  - Lip discolouration [Recovered/Resolved]
  - Lip swelling [Recovered/Resolved]
  - Peripheral swelling [Recovered/Resolved]
  - Dyspnoea [Recovered/Resolved]
  - Electrocardiogram abnormal [Recovered/Resolved]
  - Paraesthesia [Recovered/Resolved]
